FAERS Safety Report 16983533 (Version 1)
Quarter: 2019Q4

REPORT INFORMATION
  Report Type: Spontaneous
  Country: US (occurrence: US)
  Receive Date: 20190916
  Receipt Date: 20190916
  Transmission Date: 20200122
  Serious: Yes (Hospitalization)
  Sender: FDA-Public Use
  Company Number: None

PATIENT
  Age: 31 Year
  Sex: Male

DRUGS (4)
  1. FERROUS SULFATE. [Concomitant]
     Active Substance: FERROUS SULFATE
  2. PREDNISONE. [Concomitant]
     Active Substance: PREDNISONE
  3. MESALAMINE. [Suspect]
     Active Substance: MESALAMINE
     Indication: COLITIS ULCERATIVE
     Route: 048
     Dates: start: 20190708, end: 20190914
  4. MESALAMINE. [Concomitant]
     Active Substance: MESALAMINE

REACTIONS (4)
  - Diarrhoea haemorrhagic [None]
  - Product substitution issue [None]
  - Weight decreased [None]
  - Condition aggravated [None]

NARRATIVE: CASE EVENT DATE: 201909
